FAERS Safety Report 7234368-8 (Version None)
Quarter: 2011Q1

REPORT INFORMATION
  Report Type: 
  Country: None (occurrence: None)
  Receive Date: 20110119
  Receipt Date: 20101206
  Transmission Date: 20110831
  Serious: Yes (Other)
  Sender: FDA-Public Use
  Company Number: US-CTI_01241_2010

PATIENT
  Sex: Female
  Weight: 50 kg

DRUGS (8)
  1. VIT B 100 [Concomitant]
     Dosage: DF
     Route: 048
  2. HYOMAX-SR [Suspect]
     Indication: IRRITABLE BOWEL SYNDROME
     Route: 048
     Dates: end: 20101015
  3. ZANTAC [Concomitant]
     Indication: GASTROOESOPHAGEAL REFLUX DISEASE
     Route: 048
  4. CENTRUM SILVER [Concomitant]
     Dosage: DF
     Route: 048
  5. CLONIZEPAM [Concomitant]
     Route: 048
     Dates: start: 20090801
  6. SYNTHROID [Concomitant]
     Indication: HYPOTHYROIDISM
     Dosage: DF
     Route: 048
  7. VIT D3 [Concomitant]
     Dosage: DF
     Route: 048
  8. LUMIGAN [Concomitant]
     Indication: GLAUCOMA
     Dosage: [EACH EYE]

REACTIONS (16)
  - ATRIAL FIBRILLATION [None]
  - GOITRE [None]
  - PRODUCT QUALITY ISSUE [None]
  - ORAL PAIN [None]
  - DRY EYE [None]
  - VISION BLURRED [None]
  - SENSITIVITY OF TEETH [None]
  - GLAUCOMA [None]
  - PAIN [None]
  - MEDICATION RESIDUE [None]
  - DRY MOUTH [None]
  - DIARRHOEA [None]
  - HYPOTHYROIDISM [None]
  - RETINAL HAEMORRHAGE [None]
  - TACHYCARDIA [None]
  - BLINDNESS [None]
